FAERS Safety Report 25024821 (Version 1)
Quarter: 2025Q1

REPORT INFORMATION
  Report Type: Spontaneous
  Country: IN (occurrence: IN)
  Receive Date: 20250228
  Receipt Date: 20250228
  Transmission Date: 20250409
  Serious: Yes (Life-Threatening, Hospitalization, Other)
  Sender: DR REDDYS
  Company Number: IN-RDY-IND/2025/02/002623

PATIENT
  Age: 28 Year
  Sex: Male

DRUGS (3)
  1. GEMCITABINE [Suspect]
     Active Substance: GEMCITABINE
     Indication: Hodgkin^s disease
  2. BENDAMUSTINE [Suspect]
     Active Substance: BENDAMUSTINE
     Indication: Hodgkin^s disease
  3. NAVELBINE [Suspect]
     Active Substance: VINORELBINE TARTRATE
     Indication: Hodgkin^s disease

REACTIONS (4)
  - Hepatic encephalopathy [Recovered/Resolved]
  - Malignant neoplasm progression [Recovered/Resolved]
  - Drug ineffective for unapproved indication [Unknown]
  - Pancytopenia [Recovered/Resolved]
